FAERS Safety Report 6547616-4 (Version None)
Quarter: 2010Q1

REPORT INFORMATION
  Report Type: 
  Country: None (occurrence: None)
  Receive Date: 20100122
  Receipt Date: 20100113
  Transmission Date: 20100710
  Serious: Yes (Hospitalization, Other)
  Sender: FDA-Public Use
  Company Number: BR-ABBOTT-10P-020-0619054-00

PATIENT
  Sex: Female
  Weight: 103 kg

DRUGS (1)
  1. HUMIRA [Suspect]
     Indication: PSORIATIC ARTHROPATHY
     Route: 058
     Dates: start: 20090201, end: 20090401

REACTIONS (3)
  - BLOOD CHOLESTEROL INCREASED [None]
  - DEVICE DISLOCATION [None]
  - HYPERTENSION [None]
